FAERS Safety Report 25943863 (Version 1)
Quarter: 2025Q4

REPORT INFORMATION
  Report Type: Spontaneous
  Country: JP (occurrence: JP)
  Receive Date: 20251021
  Receipt Date: 20251021
  Transmission Date: 20260118
  Serious: Yes (Other)
  Sender: ROCHE
  Company Number: JP-CHUGAI-2025030444

PATIENT
  Age: 8 Decade
  Sex: Male

DRUGS (1)
  1. VABYSMO [Suspect]
     Active Substance: FARICIMAB-SVOA
     Indication: Retinal vein occlusion
     Dosage: 6 MILLIGRAM, ONCE/MONTH
     Route: 031
     Dates: start: 20250716

REACTIONS (1)
  - Retinal artery occlusion [Not Recovered/Not Resolved]

NARRATIVE: CASE EVENT DATE: 20250818
